FAERS Safety Report 17818164 (Version 2)
Quarter: 2020Q3

REPORT INFORMATION
  Report Type: Spontaneous
  Country: GB (occurrence: GB)
  Receive Date: 20200522
  Receipt Date: 20200702
  Transmission Date: 20201102
  Serious: Yes (Life-Threatening, Hospitalization, Other)
  Sender: FDA-Public Use
  Company Number: GB-PFIZER INC-2020198863

PATIENT
  Age: 52 Year
  Sex: Male

DRUGS (5)
  1. ADALIMUMAB [Suspect]
     Active Substance: ADALIMUMAB
     Indication: PSORIASIS
     Dosage: UNK
  2. METHYLPREDNISOLONE SODIUM SUCCINATE. [Suspect]
     Active Substance: METHYLPREDNISOLONE SODIUM SUCCINATE
     Indication: COLITIS ULCERATIVE
     Dosage: 80 MG, 1X/DAY (40 MG, BID)
     Route: 042
  3. MESALAZINE [Concomitant]
     Active Substance: MESALAMINE
     Indication: COLITIS ULCERATIVE
     Dosage: UNK
  4. METRONIDAZOLE. [Suspect]
     Active Substance: METRONIDAZOLE
     Indication: CLOSTRIDIUM DIFFICILE INFECTION
     Dosage: UNK
  5. COSENTYX [Suspect]
     Active Substance: SECUKINUMAB
     Indication: PSORIASIS
     Dosage: 300 MG, MONTHLY
     Route: 058
     Dates: start: 201706

REACTIONS (4)
  - Drug ineffective [Unknown]
  - Megacolon [Recovered/Resolved]
  - Loss of consciousness [Recovered/Resolved]
  - Clostridium difficile infection [Recovered/Resolved]
